FAERS Safety Report 24706083 (Version 2)
Quarter: 2024Q4

REPORT INFORMATION
  Report Type: Report from Study
  Country: ES (occurrence: ES)
  Receive Date: 20241206
  Receipt Date: 20241210
  Transmission Date: 20250115
  Serious: Yes (Hospitalization)
  Sender: EMD SERONO INC
  Company Number: ES-Merck Healthcare KGaA-2024063331

PATIENT
  Age: 33 Year
  Sex: Female

DRUGS (19)
  1. CLADRIBINE [Suspect]
     Active Substance: CLADRIBINE
     Indication: Relapsing multiple sclerosis
     Dosage: YEAR ONE WEEK ONE THERAPY: WEIGHT AT TIME OF DOSE 55 KG
  2. CLADRIBINE [Suspect]
     Active Substance: CLADRIBINE
     Dosage: YEAR ONE WEEK TWO THERAPY: WEIGHT AT TIME OF DOSE 55 KG
  3. CLADRIBINE [Suspect]
     Active Substance: CLADRIBINE
     Dosage: YEAR TWO WEEK ONE THERAPY: WEIGHT AT TIME OF DOSE 55 KG
  4. CLADRIBINE [Suspect]
     Active Substance: CLADRIBINE
     Dosage: YEAR TWO WEEK TWO THERAPY: WEIGHT AT TIME OF DOSE 55 KG
     Dates: start: 20200615, end: 20200619
  5. PREDNISONE [Concomitant]
     Active Substance: PREDNISONE
     Indication: Multiple sclerosis relapse
     Dosage: 60 DECREASED 10 MG EVERY 3 DAYS
     Dates: start: 20200427, end: 20200514
  6. ALEMTUZUMAB [Concomitant]
     Active Substance: ALEMTUZUMAB
     Indication: Relapsing-remitting multiple sclerosis
     Dates: start: 20220627, end: 20220630
  7. ALEMTUZUMAB [Concomitant]
     Active Substance: ALEMTUZUMAB
     Dates: start: 20230904, end: 20230906
  8. ACYCLOVIR [Concomitant]
     Active Substance: ACYCLOVIR
     Indication: Prophylaxis
     Dates: start: 20230904, end: 20231004
  9. LORAZEPAM [Concomitant]
     Active Substance: LORAZEPAM
     Indication: Insomnia
     Dates: start: 20200424
  10. LORAZEPAM [Concomitant]
     Active Substance: LORAZEPAM
     Dates: start: 20200601, end: 20200606
  11. RIFAXIMIN [Concomitant]
     Active Substance: RIFAXIMIN
     Indication: Dyspepsia
  12. RIFAXIMIN [Concomitant]
     Active Substance: RIFAXIMIN
  13. OMEPRAZOLE [Concomitant]
     Active Substance: OMEPRAZOLE
     Indication: Gastrointestinal disorder
     Dates: start: 20200427, end: 20200514
  14. ACETAMINOPHEN [Concomitant]
     Active Substance: ACETAMINOPHEN
     Indication: Pain
     Dosage: ONCE
     Dates: start: 20220701, end: 20220701
  15. ACETAMINOPHEN [Concomitant]
     Active Substance: ACETAMINOPHEN
     Indication: Myalgia
     Dates: start: 20230104, end: 20230109
  16. ACETAMINOPHEN [Concomitant]
     Active Substance: ACETAMINOPHEN
     Indication: Headache
     Dosage: ONCE
     Dates: start: 20230904, end: 20230904
  17. POLARAMINE [Concomitant]
     Active Substance: DEXCHLORPHENIRAMINE MALEATE
     Indication: Pain
     Dates: start: 20220701, end: 20220701
  18. NAPROXEN [Concomitant]
     Active Substance: NAPROXEN
     Indication: Headache
     Dates: start: 20230109, end: 20230112
  19. MONUROL [Concomitant]
     Active Substance: FOSFOMYCIN TROMETHAMINE
     Indication: Urinary tract infection
     Dosage: ONCE

REACTIONS (2)
  - Leukopenia [Recovered/Resolved]
  - Neutropenia [Recovered/Resolved]

NARRATIVE: CASE EVENT DATE: 20231220
